FAERS Safety Report 4600062-2 (Version None)
Quarter: 2005Q1

REPORT INFORMATION
  Report Type: 
  Country: None (occurrence: None)
  Receive Date: 20050303
  Receipt Date: 20050211
  Transmission Date: 20050727
  Serious: Yes (Death)
  Sender: FDA-Public Use
  Company Number: US_0502112390

PATIENT

DRUGS (3)
  1. ZYPREXA [Suspect]
     Indication: PSYCHOTIC DISORDER
     Dates: end: 20050701
  2. MIDAZOLAM [Concomitant]
  3. DIAZEPAM [Concomitant]

REACTIONS (1)
  - HYPOTENSION [None]
